FAERS Safety Report 6622273-7 (Version None)
Quarter: 2010Q1

REPORT INFORMATION
  Report Type: 
  Country: None (occurrence: None)
  Receive Date: 20100310
  Receipt Date: 20100302
  Transmission Date: 20100710
  Serious: Yes (Other)
  Sender: FDA-Public Use
  Company Number: JP-WYE-G05710810

PATIENT
  Sex: Female

DRUGS (7)
  1. LANSOPRAZOLE [Suspect]
     Indication: REFLUX OESOPHAGITIS
     Route: 048
     Dates: start: 20090706, end: 20091216
  2. BONALON [Concomitant]
     Indication: OSTEOPOROSIS
     Route: 048
     Dates: start: 20080112
  3. ERYTHROCIN LACTOBIONATE [Concomitant]
     Indication: BRONCHIECTASIS
     Route: 048
     Dates: start: 20071207
  4. CALCITRIOL [Concomitant]
     Indication: OSTEOPOROSIS
     Route: 048
     Dates: start: 20030605
  5. MUCODYNE [Concomitant]
     Indication: BRONCHIECTASIS
     Route: 048
  6. ALINAMIN F [Concomitant]
     Indication: MYALGIA
     Route: 048
     Dates: start: 20030605
  7. ASPARA-CA [Concomitant]
     Indication: OSTEOPOROSIS
     Route: 048
     Dates: start: 20030605

REACTIONS (1)
  - COLITIS COLLAGENOUS [None]
